FAERS Safety Report 5572360-X (Version None)
Quarter: 2007Q4

REPORT INFORMATION
  Report Type: 
  Country: None (occurrence: None)
  Receive Date: 20071219
  Receipt Date: 20071129
  Transmission Date: 20080405
  Serious: Yes (Life-Threatening)
  Sender: FDA-Public Use
  Company Number: 64911

PATIENT
  Age: 95 Year

DRUGS (9)
  1. IBUPROFEN [Suspect]
     Indication: PAIN
     Dosage: 400MG/ 3/1 DAYS/ORAL
     Route: 048
     Dates: start: 20070825, end: 20070901
  2. ASPIRIN [Suspect]
     Dosage: 75MG/ORAL
     Route: 048
     Dates: end: 20070901
  3. ALFUZOSIN HCL [Concomitant]
  4. COMBIVENT [Concomitant]
  5. DIGOXIN [Concomitant]
  6. FUROSEMIDE [Concomitant]
  7. MOVICOL [Concomitant]
  8. OVAR [Concomitant]
  9. RAMIPRIL [Concomitant]

REACTIONS (1)
  - GASTROINTESTINAL HAEMORRHAGE [None]
